FAERS Safety Report 12584814 (Version 1)
Quarter: 2016Q3

REPORT INFORMATION
  Report Type: Spontaneous
  Country: FR (occurrence: FR)
  Receive Date: 20160722
  Receipt Date: 20160722
  Transmission Date: 20161109
  Serious: Yes (Other)
  Sender: FDA-Public Use
  Company Number: FR-GILEAD-2016-0224365

PATIENT
  Age: 36 Year
  Sex: Male

DRUGS (2)
  1. ATRIPLA [Suspect]
     Active Substance: EFAVIRENZ\EMTRICITABINE\TENOFOVIR DISOPROXIL FUMARATE
     Indication: HIV TEST POSITIVE
     Dosage: 1 DF, QD
     Route: 048
     Dates: start: 20110330
  2. TETRALYSAL                         /00001701/ [Suspect]
     Active Substance: LYMECYCLINE
     Indication: FOLLICULITIS
     Dosage: 1 DF, PRN
     Route: 048
     Dates: start: 20120323

REACTIONS (2)
  - Hypospermia [Not Recovered/Not Resolved]
  - White blood cells semen positive [Not Recovered/Not Resolved]

NARRATIVE: CASE EVENT DATE: 20160427
